FAERS Safety Report 5526364-3 (Version None)
Quarter: 2007Q4

REPORT INFORMATION
  Report Type: 
  Country: None (occurrence: None)
  Receive Date: 20071121
  Receipt Date: 20071121
  Transmission Date: 20080405
  Serious: Yes (Hospitalization)
  Sender: FDA-Public Use
  Company Number: None

PATIENT
  Age: 76 Year
  Sex: Male

DRUGS (2)
  1. FUROSEMIDE [Suspect]
     Indication: HYPERTENSION
     Dosage: 20MG  AM  PO
     Route: 048
     Dates: start: 20011012
  2. METOPROLOL [Suspect]
     Dosage: 12.5MG BID PO
     Route: 048
     Dates: start: 19980206, end: 20071109

REACTIONS (3)
  - HYPOVOLAEMIA [None]
  - ORTHOSTATIC HYPOTENSION [None]
  - SYNCOPE [None]
